FAERS Safety Report 19007102 (Version 1)
Quarter: 2021Q1

REPORT INFORMATION
  Report Type: Spontaneous
  Country: US (occurrence: US)
  Receive Date: 20210313
  Receipt Date: 20210313
  Transmission Date: 20210420
  Serious: No
  Sender: FDA-Public Use
  Company Number: None

PATIENT
  Sex: Male
  Weight: 138 kg

DRUGS (16)
  1. FENTANYL INFUSION [Concomitant]
     Active Substance: FENTANYL
     Dates: start: 20210303, end: 20210310
  2. ASPIRIN 81MG [Concomitant]
     Active Substance: ASPIRIN
     Dates: start: 20210302, end: 20210310
  3. VANCOMYCIN [Concomitant]
     Active Substance: VANCOMYCIN
     Dates: start: 20210307, end: 20210310
  4. FAMOTIDINE 20MG [Concomitant]
     Active Substance: FAMOTIDINE
     Dates: start: 20210307, end: 20210310
  5. PHENYLEPHRINE [Suspect]
     Active Substance: PHENYLEPHRINE HYDROCHLORIDE
     Indication: HYPOTENSION
     Dosage: ?          OTHER FREQUENCY:0.5?9 MCG/KG/MIN;?
     Route: 041
     Dates: start: 20210303, end: 20210310
  6. DEXAMETHASONE 6MG [Concomitant]
     Dates: start: 20210302, end: 20210310
  7. EPINEPHRINE INFUSION [Concomitant]
     Active Substance: EPINEPHRINE
     Dates: start: 20210309, end: 20210310
  8. HEPARIN [Concomitant]
     Active Substance: HEPARIN SODIUM
     Dates: start: 20210302, end: 20210310
  9. NOREPINEPHRINE. [Concomitant]
     Active Substance: NOREPINEPHRINE
     Dates: start: 20210303, end: 20210310
  10. PHENYLEPHRINE [Suspect]
     Active Substance: PHENYLEPHRINE HYDROCHLORIDE
     Indication: SHOCK
     Dosage: ?          OTHER FREQUENCY:0.5?9 MCG/KG/MIN;?
     Route: 041
     Dates: start: 20210303, end: 20210310
  11. INSULIN INFUSION [Concomitant]
     Dates: start: 20210307, end: 20210310
  12. AMIODARONE INFUSION [Concomitant]
     Dates: start: 20210309, end: 20210310
  13. CEFEPIME [Concomitant]
     Active Substance: CEFEPIME HYDROCHLORIDE
     Dates: start: 20210307, end: 20210310
  14. ATORVASTATIN 40MG [Concomitant]
     Active Substance: ATORVASTATIN
     Dates: start: 20210302, end: 20210310
  15. FLUCONAZOLE 200MG [Concomitant]
     Active Substance: FLUCONAZOLE
     Dates: start: 20210309, end: 20210310
  16. MIDAZOLAM INFUSION [Concomitant]
     Active Substance: MIDAZOLAM HYDROCHLORIDE
     Dates: start: 20210303, end: 20210310

REACTIONS (2)
  - Recalled product administered [None]
  - Product sterility lacking [None]
